FAERS Safety Report 25451660 (Version 1)
Quarter: 2025Q2

REPORT INFORMATION
  Report Type: Spontaneous
  Country: CN (occurrence: CN)
  Receive Date: 20250618
  Receipt Date: 20250618
  Transmission Date: 20250717
  Serious: Yes (Hospitalization, Other)
  Sender: SANOFI AVENTIS
  Company Number: CN-SA-2025SA172497

PATIENT
  Age: 51 Year
  Sex: Female
  Weight: 62.5 kg

DRUGS (5)
  1. OXALIPLATIN [Suspect]
     Active Substance: OXALIPLATIN
     Indication: Gastrointestinal carcinoma
     Dosage: 200 MG, Q3W (D1)
     Route: 041
     Dates: start: 20250407, end: 20250429
  2. SINTILIMAB [Suspect]
     Active Substance: SINTILIMAB
     Indication: Gastrointestinal carcinoma
     Dosage: 200 MG, Q3W (D1)
     Route: 041
     Dates: start: 20250407, end: 20250429
  3. CAPECITABINE [Suspect]
     Active Substance: CAPECITABINE
     Indication: Gastrointestinal carcinoma
     Dosage: 1.5 G, BID (D1-14)
     Route: 048
     Dates: start: 20250407, end: 20250430
  4. DEXTROSE [Concomitant]
     Active Substance: DEXTROSE MONOHYDRATE
     Indication: Gastrointestinal carcinoma
     Dosage: 500 ML, Q3W (D1)
     Route: 041
     Dates: start: 20250407, end: 20250430
  5. SODIUM CHLORIDE [Concomitant]
     Active Substance: SODIUM CHLORIDE
     Indication: Gastrointestinal carcinoma
     Dosage: 100 ML, Q3W (D1)
     Route: 041
     Dates: start: 20250407

REACTIONS (3)
  - Rash pruritic [Recovering/Resolving]
  - Skin temperature increased [Recovering/Resolving]
  - Rash maculo-papular [Recovering/Resolving]

NARRATIVE: CASE EVENT DATE: 20250424
